FAERS Safety Report 21371416 (Version 1)
Quarter: 2022Q3

REPORT INFORMATION
  Report Type: Spontaneous
  Country: US (occurrence: None)
  Receive Date: 20220922
  Receipt Date: 20220922
  Transmission Date: 20221027
  Serious: Yes (Hospitalization)
  Sender: FDA-Public Use
  Company Number: None

PATIENT
  Age: 61 Year
  Sex: Male
  Weight: 97 kg

DRUGS (9)
  1. ROMIDEPSIN [Suspect]
     Active Substance: ROMIDEPSIN
     Dosage: FREQUENCY : UNKNOWN?
     Route: 042
     Dates: start: 20220609, end: 20220804
  2. TYLENOL [Concomitant]
     Active Substance: ACETAMINOPHEN
  3. LIPITOR [Concomitant]
     Active Substance: ATORVASTATIN CALCIUM
  4. NEXIUM [Concomitant]
     Active Substance: ESOMEPRAZOLE MAGNESIUM
  5. REMERON [Concomitant]
     Active Substance: MIRTAZAPINE
  6. MIRALAX OTC [Concomitant]
  7. COLACE OTC [Concomitant]
  8. MAGNESIUM OXIDE (MAG-OX) [Concomitant]
  9. AZACITIDINE (ORAL 5-AZA)ON CLINICAL TRIAL [Concomitant]

REACTIONS (1)
  - Syncope [None]

NARRATIVE: CASE EVENT DATE: 20220801
